FAERS Safety Report 21442824 (Version 4)
Quarter: 2022Q4

REPORT INFORMATION
  Report Type: Report from Study
  Country: US (occurrence: US)
  Receive Date: 20221012
  Receipt Date: 20221219
  Transmission Date: 20230112
  Serious: Yes (Other)
  Sender: FDA-Public Use
  Company Number: US-NOVARTISTESTPH-NVSC2022US229495

PATIENT
  Sex: Female

DRUGS (1)
  1. COSENTYX [Suspect]
     Active Substance: SECUKINUMAB
     Indication: Psoriatic arthropathy
     Dosage: 300 MG, QMO
     Route: 058

REACTIONS (8)
  - Oesophageal ulcer [Unknown]
  - Dysphagia [Unknown]
  - Dyspepsia [Unknown]
  - Oesophageal infection [Unknown]
  - Immune system disorder [Unknown]
  - Skin plaque [Recovering/Resolving]
  - Fungal infection [Unknown]
  - Therapeutic product effect incomplete [Recovering/Resolving]
